FAERS Safety Report 20002896 (Version 1)
Quarter: 2021Q4

REPORT INFORMATION
  Report Type: Spontaneous
  Country: KR (occurrence: KR)
  Receive Date: 20211028
  Receipt Date: 20211028
  Transmission Date: 20220303
  Serious: Yes (Other)
  Sender: FDA-Public Use
  Company Number: KR-AMGEN-KORSL2021166861

PATIENT
  Age: 48 Year
  Sex: Female

DRUGS (48)
  1. FILGRASTIM [Suspect]
     Active Substance: FILGRASTIM
     Indication: Product used for unknown indication
     Dosage: 300 UG, QD
     Route: 042
     Dates: start: 20160404, end: 20160404
  2. APREPITANT [Suspect]
     Active Substance: APREPITANT
     Indication: Product used for unknown indication
     Dosage: 150 MILLIGRAM, QD
     Route: 042
     Dates: start: 20160323, end: 20160323
  3. APREPITANT [Suspect]
     Active Substance: APREPITANT
     Dosage: 150 MILLIGRAM, QD
     Route: 042
     Dates: start: 20160413, end: 20160413
  4. APREPITANT [Suspect]
     Active Substance: APREPITANT
     Dosage: 150 MILLIGRAM, QD
     Route: 042
     Dates: start: 20160504, end: 20160504
  5. UNSPECIFIED INGREDIENT [Concomitant]
     Active Substance: UNSPECIFIED INGREDIENT
     Indication: Product used for unknown indication
     Dosage: 1 DF, QD
     Route: 048
     Dates: start: 2016, end: 20160310
  6. UNSPECIFIED INGREDIENT [Concomitant]
     Active Substance: UNSPECIFIED INGREDIENT
     Indication: Product used for unknown indication
     Dosage: 1 DF, QD
     Route: 048
     Dates: start: 20160506, end: 20160513
  7. OPIUM DERIVATIVES AND EXPECTORANTS [Concomitant]
     Indication: Product used for unknown indication
     Dosage: 15 MILLIGRAM, QD
     Route: 048
     Dates: start: 20160322, end: 20160331
  8. ACETYLCYSTEINE [Concomitant]
     Active Substance: ACETYLCYSTEINE
     Indication: Product used for unknown indication
     Dosage: 200 MILLIGRAM, QD
     Route: 048
     Dates: start: 20160322, end: 20160325
  9. CEFROXADINE [Concomitant]
     Active Substance: CEFROXADINE
     Indication: Product used for unknown indication
     Dosage: 250 MILLILITER, QD
     Route: 048
     Dates: start: 20160506, end: 20160513
  10. CYCLOPHOSPHAMIDE [Concomitant]
     Active Substance: CYCLOPHOSPHAMIDE
     Indication: Product used for unknown indication
     Dosage: 1030 MILLIGRAM, QD
     Route: 042
     Dates: start: 20160323, end: 20160323
  11. CYCLOPHOSPHAMIDE [Concomitant]
     Active Substance: CYCLOPHOSPHAMIDE
     Dosage: 1030 MILLIGRAM, QD
     Route: 042
     Dates: start: 20160413, end: 20160413
  12. CYCLOPHOSPHAMIDE [Concomitant]
     Active Substance: CYCLOPHOSPHAMIDE
     Dosage: 1030 MILLIGRAM, QD
     Route: 042
     Dates: start: 20160504, end: 20160504
  13. DEXAMETHASONE [Concomitant]
     Active Substance: DEXAMETHASONE
     Indication: Product used for unknown indication
     Dosage: 5 MILLIGRAM, QD
     Route: 042
     Dates: start: 20160323, end: 20160323
  14. DEXAMETHASONE [Concomitant]
     Active Substance: DEXAMETHASONE
     Dosage: 0.5 MILLIGRAM, QD
     Route: 042
     Dates: start: 20160324, end: 20160325
  15. DEXAMETHASONE [Concomitant]
     Active Substance: DEXAMETHASONE
     Dosage: 5 MILLIGRAM, QD
     Route: 042
     Dates: start: 20160413, end: 20160413
  16. DEXAMETHASONE [Concomitant]
     Active Substance: DEXAMETHASONE
     Dosage: 5 MILLIGRAM, QD
     Route: 042
     Dates: start: 20160504, end: 20160504
  17. DIPHENYLPYRALINE [Concomitant]
     Active Substance: DIPHENYLPYRALINE
     Indication: Product used for unknown indication
     Dosage: 1.5 MILLIGRAM, QD
     Route: 058
     Dates: start: 20160324, end: 20160325
  18. DIPHENYLPYRALINE [Concomitant]
     Active Substance: DIPHENYLPYRALINE
     Dosage: 1.5 MILLIGRAM, QD
     Route: 058
     Dates: start: 20160413, end: 20160416
  19. DIPHENYLPYRALINE [Concomitant]
     Active Substance: DIPHENYLPYRALINE
     Dosage: 1.5 MILLIGRAM, QD
     Route: 058
     Dates: start: 20160504, end: 20160507
  20. DOXORUBICIN [Concomitant]
     Active Substance: DOXORUBICIN
     Indication: Product used for unknown indication
     Dosage: 103 MILLIGRAM, QD
     Route: 042
     Dates: start: 20160323, end: 20160323
  21. DOXORUBICIN [Concomitant]
     Active Substance: DOXORUBICIN
     Dosage: 103 MILLIGRAM, QD
     Route: 042
     Dates: start: 20160413, end: 20160413
  22. DOXORUBICIN [Concomitant]
     Active Substance: DOXORUBICIN
     Dosage: 103 MILLIGRAM, QD
     Route: 042
     Dates: start: 20160504, end: 20160504
  23. EPERISONE [Concomitant]
     Active Substance: EPERISONE
     Indication: Product used for unknown indication
     Dosage: 50 MILLIGRAM, QD
     Route: 065
     Dates: start: 20160506, end: 20160513
  24. ESOMEPRAZOLE. [Concomitant]
     Active Substance: ESOMEPRAZOLE MAGNESIUM
     Indication: Product used for unknown indication
     Dosage: 40 MILLIGRAM, QD
     Route: 048
     Dates: start: 20160517, end: 20160523
  25. FLUOROMETHOLONE [Concomitant]
     Active Substance: FLUOROMETHOLONE
     Indication: Product used for unknown indication
     Dosage: UNK UNK, QD
     Route: 047
     Dates: start: 20160426
  26. GRANISETRON [Concomitant]
     Active Substance: GRANISETRON
     Indication: Product used for unknown indication
     Dosage: 34.3 MILLIGRAM
     Route: 065
     Dates: start: 20160415, end: 20160416
  27. IBUPROFEN [Concomitant]
     Active Substance: IBUPROFEN
     Indication: Product used for unknown indication
     Dosage: UNK UNK, QD (1 DF)
     Route: 048
     Dates: start: 20160506, end: 20160513
  28. LEVOFLOXACIN [Concomitant]
     Active Substance: LEVOFLOXACIN
     Indication: Product used for unknown indication
     Dosage: UNK UNK, QD
     Route: 047
     Dates: start: 20160414
  29. METOCLOPRAMIDE [Concomitant]
     Active Substance: METOCLOPRAMIDE
     Indication: Product used for unknown indication
     Dosage: 10 MILLIGRAM, QD
     Route: 042
     Dates: start: 20160324, end: 20160325
  30. METOCLOPRAMIDE [Concomitant]
     Active Substance: METOCLOPRAMIDE
     Dosage: 5 MILLIGRAM, QD
     Route: 042
     Dates: start: 20160325, end: 20160329
  31. METOCLOPRAMIDE [Concomitant]
     Active Substance: METOCLOPRAMIDE
     Dosage: 10 MILLIGRAM, QD
     Route: 042
     Dates: start: 20160413, end: 20160416
  32. METOCLOPRAMIDE [Concomitant]
     Active Substance: METOCLOPRAMIDE
     Dosage: 5 MILLIGRAM, QD
     Route: 042
     Dates: start: 20160416, end: 20160420
  33. METOCLOPRAMIDE [Concomitant]
     Active Substance: METOCLOPRAMIDE
     Dosage: 10 MILLIGRAM, QD
     Route: 042
     Dates: start: 20160504, end: 20160507
  34. METOCLOPRAMIDE [Concomitant]
     Active Substance: METOCLOPRAMIDE
     Dosage: 5 MILLIGRAM, QD
     Route: 042
     Dates: start: 20160507, end: 20160511
  35. OLANZAPINE [Concomitant]
     Active Substance: OLANZAPINE
     Indication: Product used for unknown indication
     Dosage: 5 MILLIGRAM, QD
     Route: 048
     Dates: start: 20160325, end: 20160329
  36. OLANZAPINE [Concomitant]
     Active Substance: OLANZAPINE
     Dosage: 5 MILLIGRAM, QD
     Route: 048
     Dates: start: 20160414, end: 20160416
  37. OLANZAPINE [Concomitant]
     Active Substance: OLANZAPINE
     Dosage: 5 MILLIGRAM, QD
     Route: 048
     Dates: start: 20160504, end: 20160504
  38. PALONOSETRON. [Concomitant]
     Active Substance: PALONOSETRON HYDROCHLORIDE
     Indication: Product used for unknown indication
     Dosage: 5 MILLILITER, QD
     Route: 042
     Dates: start: 20160323, end: 20160323
  39. PALONOSETRON. [Concomitant]
     Active Substance: PALONOSETRON HYDROCHLORIDE
     Dosage: 5 MILLILITER, QD
     Route: 042
     Dates: start: 20160413, end: 20160413
  40. PALONOSETRON. [Concomitant]
     Active Substance: PALONOSETRON HYDROCHLORIDE
     Dosage: 5 MILLILITER, QD
     Route: 042
     Dates: start: 20160504, end: 20160504
  41. ACETAMINOPHEN [Concomitant]
     Active Substance: ACETAMINOPHEN
     Indication: Product used for unknown indication
     Dosage: 650 MILLIGRAM, QD
     Route: 048
     Dates: start: 2016, end: 20160310
  42. ACETAMINOPHEN [Concomitant]
     Active Substance: ACETAMINOPHEN
     Dosage: UNK UNK, QD (1 DF)
     Route: 048
     Dates: start: 20160404, end: 20160406
  43. RANITIDINE [Concomitant]
     Active Substance: RANITIDINE
     Indication: Product used for unknown indication
     Dosage: 75 MILLIGRAM, QD
     Route: 042
     Dates: start: 20160323, end: 20160325
  44. RANITIDINE [Concomitant]
     Active Substance: RANITIDINE
     Dosage: 50 MILLIGRAM, QD
     Route: 042
     Dates: start: 20160415, end: 20160415
  45. SERTACONAZOLE [Concomitant]
     Active Substance: SERTACONAZOLE
     Indication: Product used for unknown indication
     Dosage: 500 MILLIGRAM, QD
     Dates: start: 20160426, end: 20160426
  46. SERTACONAZOLE [Concomitant]
     Active Substance: SERTACONAZOLE
     Dosage: 500 MILLIGRAM, QD
     Dates: start: 20160517, end: 20160523
  47. TRAMADOL [Concomitant]
     Active Substance: TRAMADOL
     Indication: Product used for unknown indication
     Dosage: 50 MILLIGRAM, QD
     Route: 042
     Dates: start: 20160323, end: 20160323
  48. TRAMADOL [Concomitant]
     Active Substance: TRAMADOL
     Dosage: 50 MILLIGRAM, QD
     Route: 042
     Dates: start: 20160323, end: 20160323

REACTIONS (5)
  - Stomatitis [Recovered/Resolved]
  - Neutropenia [Recovered/Resolved]
  - Neutrophil count decreased [Recovered/Resolved]
  - Neutrophil count decreased [Recovered/Resolved]
  - Nausea [Recovered/Resolved]

NARRATIVE: CASE EVENT DATE: 20160404
